FAERS Safety Report 15256931 (Version 2)
Quarter: 2018Q3

REPORT INFORMATION
  Report Type: Report from Study
  Country: MX (occurrence: MX)
  Receive Date: 20180808
  Receipt Date: 20180904
  Transmission Date: 20181010
  Serious: Yes (Other)
  Sender: FDA-Public Use
  Company Number: PHHY2018MX061464

PATIENT
  Sex: Female
  Weight: 56 kg

DRUGS (2)
  1. SOTOLDOR [Concomitant]
     Indication: GLAUCOMA
     Dosage: 1 GTT, (EVERY THIRD DAY AT NIGHT)
     Route: 047
  2. TRAVATAN [Suspect]
     Active Substance: TRAVOPROST
     Indication: GLAUCOMA
     Dosage: 1 DF, IN EACH EYE EVERY THIRD DAY
     Route: 047

REACTIONS (3)
  - Eye haemorrhage [Recovered/Resolved]
  - Ocular hyperaemia [Recovered/Resolved]
  - Inappropriate schedule of drug administration [Unknown]
